FAERS Safety Report 13961903 (Version 2)
Quarter: 2017Q4

REPORT INFORMATION
  Report Type: Report from Study
  Country: IN (occurrence: IN)
  Receive Date: 20170912
  Receipt Date: 20171006
  Transmission Date: 20180320
  Serious: Yes (Hospitalization)
  Sender: FDA-Public Use
  Company Number: IN-BAUSCH-BL-2017-026614

PATIENT
  Age: 63 Year
  Sex: Male
  Weight: 54 kg

DRUGS (3)
  1. PEGYLATED INTERFERON ALFA 2A [Suspect]
     Active Substance: PEGINTERFERON ALFA-2A
     Indication: HEPATITIS C
     Dosage: 135 MICROG/DOSE EVERY WEEK
     Route: 058
     Dates: start: 20141129, end: 20150110
  2. PEGYLATED INTERFERON ALFA 2B [Suspect]
     Active Substance: PEGINTERFERON ALFA-2B
     Indication: HEPATITIS C
     Dosage: 50 MICROG/DOSE EVERY WEEK
     Route: 058
     Dates: start: 20141129, end: 20150110
  3. RIBAVIRIN. [Suspect]
     Active Substance: RIBAVIRIN
     Indication: HEPATITIS C
     Route: 048
     Dates: start: 20141129, end: 20150110

REACTIONS (5)
  - Asthenia [Unknown]
  - Fatigue [Unknown]
  - Adverse event [Unknown]
  - Anaemia [Recovering/Resolving]
  - Pneumonia [Unknown]

NARRATIVE: CASE EVENT DATE: 20150110
